FAERS Safety Report 23071191 (Version 1)
Quarter: 2023Q4

REPORT INFORMATION
  Report Type: Other
  Country: CN (occurrence: CN)
  Receive Date: 20231016
  Receipt Date: 20231016
  Transmission Date: 20240110
  Serious: Yes (Life-Threatening)
  Sender: FDA-Public Use
  Company Number: CN-ANTENGENE-20231002052

PATIENT
  Age: 54 Year
  Sex: Female

DRUGS (8)
  1. XPOVIO [Suspect]
     Active Substance: SELINEXOR
     Indication: Plasma cell myeloma
     Dosage: 60 MG, QW
     Route: 048
     Dates: start: 20230912, end: 20230912
  2. CARFILZOMIB [Suspect]
     Active Substance: CARFILZOMIB
     Indication: Plasma cell myeloma
     Dosage: 30 MG, QD ON DAY 1-2
     Route: 042
     Dates: start: 20230913, end: 20230914
  3. CISPLATIN [Suspect]
     Active Substance: CISPLATIN
     Indication: Plasma cell myeloma
     Dosage: 16 MG, QD ON DAY 1-4
     Route: 042
     Dates: start: 20230912, end: 20230916
  4. CYCLOPHOSPHAMIDE [Suspect]
     Active Substance: CYCLOPHOSPHAMIDE
     Indication: Plasma cell myeloma
     Dosage: 600 MG, QD ON DAY 1-4
     Route: 042
     Dates: start: 20230912, end: 20230916
  5. ETOPOSIDE [Suspect]
     Active Substance: ETOPOSIDE
     Indication: Plasma cell myeloma
     Dosage: 60 MG, QD ON DAY 1-4
     Route: 042
     Dates: start: 20230912, end: 20230916
  6. EPIRUBICIN HYDROCHLORIDE [Suspect]
     Active Substance: EPIRUBICIN HYDROCHLORIDE
     Indication: Plasma cell myeloma
     Dosage: 25 MG, QD ON DAY 1-4
     Route: 042
     Dates: start: 20230912, end: 20230916
  7. DEXAMETHASONE SODIUM PHOSPHATE [Suspect]
     Active Substance: DEXAMETHASONE SODIUM PHOSPHATE
     Indication: Plasma cell myeloma
     Dosage: 20 MG
     Route: 042
     Dates: start: 20230904, end: 20230906
  8. DEXAMETHASONE SODIUM PHOSPHATE [Suspect]
     Active Substance: DEXAMETHASONE SODIUM PHOSPHATE
     Dosage: 40 MG, QD ON DAY 1-4
     Route: 058
     Dates: start: 20230912, end: 20230916

REACTIONS (4)
  - White blood cell count decreased [Recovering/Resolving]
  - Neutrophil count decreased [Recovering/Resolving]
  - Platelet count decreased [Recovering/Resolving]
  - Haemoglobin decreased [Not Recovered/Not Resolved]

NARRATIVE: CASE EVENT DATE: 20230918
